FAERS Safety Report 12480856 (Version 4)
Quarter: 2016Q3

REPORT INFORMATION
  Report Type: Spontaneous
  Country: US (occurrence: US)
  Receive Date: 20160620
  Receipt Date: 20160922
  Transmission Date: 20161109
  Serious: Yes (Other)
  Sender: FDA-Public Use
  Company Number: US-PFIZER INC-2016300397

PATIENT
  Age: 61 Year
  Sex: Female

DRUGS (8)
  1. NEURONTIN [Suspect]
     Active Substance: GABAPENTIN
     Indication: NEUROPATHY PERIPHERAL
     Dosage: 600 MG, 3X/DAY (MORNING AFTERNOON NIGHT)
  2. LISINOPRIL. [Concomitant]
     Active Substance: LISINOPRIL
     Dosage: 20 MG, 1X/DAY (MORNING)
  3. NPH INSULIN [Concomitant]
     Active Substance: INSULIN BEEF
     Dosage: UNK, 2X/DAY (2 INJECTION MORNING AND NIGHT) (70 UNITS)
  4. METFORMIN [Concomitant]
     Active Substance: METFORMIN HYDROCHLORIDE
     Dosage: 500 MG, 2X/DAY
  5. CARBAMAZEPINE. [Concomitant]
     Active Substance: CARBAMAZEPINE
     Dosage: 200 MG, 2X/DAY (MORNING-NIGHT)
  6. NEURONTIN [Suspect]
     Active Substance: GABAPENTIN
     Indication: PARAESTHESIA
  7. ABILIFY [Concomitant]
     Active Substance: ARIPIPRAZOLE
     Dosage: 30 MG, UNK
  8. HALDOL [Concomitant]
     Active Substance: HALOPERIDOL
     Dosage: UNK, 2X/DAY (MORNING-NIGHT)

REACTIONS (8)
  - Pain [Unknown]
  - Drug ineffective for unapproved indication [Unknown]
  - Vision blurred [Unknown]
  - Lung disorder [Unknown]
  - Discomfort [Unknown]
  - Cardiac failure [Unknown]
  - Cataract [Unknown]
  - Cough [Unknown]
